FAERS Safety Report 18586537 (Version 2)
Quarter: 2021Q2

REPORT INFORMATION
  Report Type: Report from Study
  Country: US (occurrence: US)
  Receive Date: 20201207
  Receipt Date: 20210621
  Transmission Date: 20210717
  Serious: Yes (Other)
  Sender: FDA-Public Use
  Company Number: US-MYLANLABS-2018M1049008

PATIENT
  Sex: Female
  Weight: 109 kg

DRUGS (2)
  1. GLATIRAMER ACETATE INJECTION [Suspect]
     Active Substance: GLATIRAMER ACETATE
     Indication: RELAPSING-REMITTING MULTIPLE SCLEROSIS
     Dosage: 40 MG, 3XW
     Route: 058
     Dates: start: 2018
  2. GLATIRAMER ACETATE INJECTION [Suspect]
     Active Substance: GLATIRAMER ACETATE
     Indication: MULTIPLE SCLEROSIS

REACTIONS (11)
  - Multiple sclerosis relapse [Unknown]
  - Anxiety [Unknown]
  - Paraesthesia [Unknown]
  - Injection site pain [Unknown]
  - Dizziness [Unknown]
  - Confusional state [Unknown]
  - Fatigue [Unknown]
  - Arthralgia [Unknown]
  - Injection site bruising [Unknown]
  - Diplopia [Unknown]
  - Product dose omission issue [Unknown]

NARRATIVE: CASE EVENT DATE: 2018
